FAERS Safety Report 7010323-8 (Version None)
Quarter: 2010Q3

REPORT INFORMATION
  Report Type: 
  Country: None (occurrence: None)
  Receive Date: 20100923
  Receipt Date: 20100916
  Transmission Date: 20110219
  Serious: Yes (Hospitalization)
  Sender: FDA-Public Use
  Company Number: B0674805A

PATIENT
  Sex: Female

DRUGS (14)
  1. AUGMENTIN '125' [Suspect]
     Indication: PRODUCT USED FOR UNKNOWN INDICATION
     Dosage: 1G THREE TIMES PER DAY
     Route: 048
     Dates: start: 20100810, end: 20100823
  2. LIRAGLUTIDE [Concomitant]
     Dosage: 1.2MG PER DAY
     Route: 065
     Dates: start: 20100810
  3. TAREG [Concomitant]
     Route: 065
  4. EUPRESSYL [Concomitant]
     Dosage: 60MG TWICE PER DAY
     Route: 065
  5. NEBIVOLOL HCL [Concomitant]
     Dosage: 5MG PER DAY
     Route: 065
  6. FUROSEMIDE [Concomitant]
     Dosage: 40MG TWICE PER DAY
     Route: 065
  7. HYPERIUM [Concomitant]
     Dosage: 1MG TWICE PER DAY
     Route: 065
  8. TEMESTA [Concomitant]
     Dosage: 1MG PER DAY
     Route: 065
  9. TRIMEPRAZINE TAB [Concomitant]
     Dosage: 4DROP PER DAY
     Route: 065
  10. XYZAL [Concomitant]
     Dosage: 1TAB PER DAY
     Route: 065
  11. EZETROL [Concomitant]
     Dosage: 10MG PER DAY
     Route: 065
  12. NEURONTIN [Concomitant]
     Dosage: 300MG THREE TIMES PER DAY
     Route: 065
  13. SEROPLEX [Concomitant]
     Route: 065
  14. INSULIN [Concomitant]
     Route: 065

REACTIONS (5)
  - BLOOD CREATININE INCREASED [None]
  - HEPATOCELLULAR INJURY [None]
  - HEPATOMEGALY [None]
  - INFLAMMATION [None]
  - PYREXIA [None]
